FAERS Safety Report 9205288 (Version 4)
Quarter: 2014Q1

REPORT INFORMATION
  Report Type: Report from Study
  Country: JP (occurrence: JP)
  Receive Date: 20130402
  Receipt Date: 20140220
  Transmission Date: 20141002
  Serious: Yes (Hospitalization)
  Sender: FDA-Public Use
  Company Number: JP-PFIZER INC-2013099750

PATIENT
  Age: 41 Year
  Sex: Female
  Weight: 50 kg

DRUGS (2)
  1. AZITHROMYCIN [Suspect]
     Indication: PELVIC INFLAMMATORY DISEASE
     Dosage: 500 MG, DAILY
     Route: 042
     Dates: start: 20130206, end: 20130207
  2. LOXONIN [Concomitant]
     Indication: PELVIC INFLAMMATORY DISEASE
     Dosage: UNK
     Route: 048
     Dates: start: 20130115, end: 20130215

REACTIONS (1)
  - Peritonitis [Recovered/Resolved]
